FAERS Safety Report 10482106 (Version 1)
Quarter: 2014Q3

REPORT INFORMATION
  Report Type: Spontaneous
  Country: PT (occurrence: PT)
  Receive Date: 20140929
  Receipt Date: 20140929
  Transmission Date: 20150326
  Serious: Yes (Other)
  Sender: FDA-Public Use
  Company Number: PT-ACTAVIS-2014-20690

PATIENT
  Age: 45 Year
  Sex: Female
  Weight: 61 kg

DRUGS (4)
  1. ONDANSETROM                        /00955301/ [Concomitant]
     Indication: PROPHYLAXIS OF NAUSEA AND VOMITING
     Dosage: 8 MG, DAILY
     Route: 042
     Dates: start: 20140908, end: 20140908
  2. DEXAMETASONA                       /00016001/ [Concomitant]
     Indication: PROPHYLAXIS OF NAUSEA AND VOMITING
     Dosage: 20 MG, DAILY
     Route: 042
     Dates: start: 20140908, end: 20140908
  3. DOCETAXEL ACTAVIS [Suspect]
     Active Substance: DOCETAXEL
     Indication: BREAST CANCER
     Dosage: 160 MG, 1/ THREE WEEKS
     Route: 042
     Dates: start: 20140908, end: 20140908
  4. PREDNISOLONA                       /00016201/ [Concomitant]
     Indication: ALLERGY PROPHYLAXIS
     Dosage: 40 MG, 3/2 DAYS
     Route: 048
     Dates: start: 20140907, end: 20140908

REACTIONS (3)
  - Chest discomfort [Recovered/Resolved]
  - Anaphylactic reaction [Recovered/Resolved]
  - Erythema [Recovered/Resolved]

NARRATIVE: CASE EVENT DATE: 20140908
